FAERS Safety Report 10204921 (Version 1)
Quarter: 2014Q2

REPORT INFORMATION
  Report Type: Spontaneous
  Country: US (occurrence: None)
  Receive Date: 20140527
  Receipt Date: 20140527
  Transmission Date: 20141212
  Serious: Yes (Other)
  Sender: FDA-Public Use
  Company Number: None

PATIENT
  Age: 63 Year
  Sex: Female

DRUGS (1)
  1. CIPROFLAXAIN 500MG BAYER [Suspect]
     Indication: DIVERTICULITIS
     Dosage: 1 PILL, TWICE DAILY, TAKEN BY MOUTH.
     Route: 048
     Dates: start: 20140515, end: 20140522

REACTIONS (5)
  - Rash generalised [None]
  - Blister [None]
  - Pruritus [None]
  - Burning sensation [None]
  - Insomnia [None]
